FAERS Safety Report 8550949-3 (Version None)
Quarter: 2012Q3

REPORT INFORMATION
  Report Type: 
  Country: None (occurrence: None)
  Receive Date: 20120730
  Receipt Date: 20120720
  Transmission Date: 20120928
  Serious: Yes (Other)
  Sender: FDA-Public Use
  Company Number: US-ASTRAZENECA-2011SE61913

PATIENT
  Age: 57 Year
  Sex: Female

DRUGS (3)
  1. NEXIUM [Suspect]
     Dosage: DAILY
     Route: 048
  2. NEXIUM [Suspect]
     Dosage: TWICE DAILY
     Route: 048
  3. NEXIUM [Suspect]
     Route: 048

REACTIONS (12)
  - DRUG PRESCRIBING ERROR [None]
  - INAPPROPRIATE SCHEDULE OF DRUG ADMINISTRATION [None]
  - GASTROOESOPHAGEAL REFLUX DISEASE [None]
  - INTENTIONAL DRUG MISUSE [None]
  - POST PROCEDURAL COMPLICATION [None]
  - ADRENAL GLAND INJURY [None]
  - GASTROINTESTINAL MUCOSAL EXFOLIATION [None]
  - STRESS FRACTURE [None]
  - OSTEOGENESIS IMPERFECTA [None]
  - OROPHARYNGEAL PAIN [None]
  - DYSPEPSIA [None]
  - BARRETT'S OESOPHAGUS [None]
